FAERS Safety Report 5639589-3 (Version None)
Quarter: 2008Q1

REPORT INFORMATION
  Report Type: 
  Country: None (occurrence: None)
  Receive Date: 20080222
  Receipt Date: 20080212
  Transmission Date: 20080703
  Serious: Yes (Other)
  Sender: FDA-Public Use
  Company Number: 2008-01318

PATIENT
  Age: 55 Year
  Sex: Male

DRUGS (2)
  1. METHYLPREDNISOLONE ACETATE [Suspect]
     Indication: IMMUNOSUPPRESSANT DRUG THERAPY
     Dates: start: 20000101
  2. TACROLIMUS [Suspect]
     Dosage: IMMUNOSUPPRESSIVE REGIMEN

REACTIONS (2)
  - CHRONIC MYELOID LEUKAEMIA [None]
  - RENAL FAILURE ACUTE [None]
